FAERS Safety Report 14879855 (Version 2)
Quarter: 2018Q2

REPORT INFORMATION
  Report Type: Spontaneous
  Country: SA (occurrence: SA)
  Receive Date: 20180511
  Receipt Date: 20180525
  Transmission Date: 20180711
  Serious: Yes (Hospitalization)
  Sender: FDA-Public Use
  Company Number: PHHY2018SA003834

PATIENT
  Age: 20 Year
  Sex: Male

DRUGS (1)
  1. EXJADE [Suspect]
     Active Substance: DEFERASIROX
     Indication: THALASSAEMIA
     Dosage: UNK
     Route: 048

REACTIONS (5)
  - Pallor [Unknown]
  - Pruritus [Recovered/Resolved]
  - Malaise [Unknown]
  - Serum ferritin increased [Unknown]
  - Wrong technique in product usage process [Not Recovered/Not Resolved]
